FAERS Safety Report 18464430 (Version 1)
Quarter: 2020Q4

REPORT INFORMATION
  Report Type: Spontaneous
  Country: US (occurrence: US)
  Receive Date: 20201104
  Receipt Date: 20201104
  Transmission Date: 20210114
  Serious: No
  Sender: FDA-Public Use
  Company Number: US-ASTRAZENECA-2020SF12348

PATIENT
  Age: 62 Year
  Weight: 95.3 kg

DRUGS (14)
  1. MYCOSTATIN [Concomitant]
     Active Substance: NYSTATIN
     Route: 061
  2. OZEMPIC [Concomitant]
     Active Substance: SEMAGLUTIDE
     Route: 058
  3. BYDUREON BCISE [Suspect]
     Active Substance: EXENATIDE
     Indication: DIABETES MELLITUS
     Route: 058
     Dates: start: 2020
  4. VITAMIN B COMPLEX [Concomitant]
     Active Substance: CYANOCOBALAMIN\DEXPANTHENOL\NIACINAMIDE\PYRIDOXINE HYDROCHLORIDE\RIBOFLAVIN 5^-PHOSPHATE SODIUM\THIAMINE HYDROCHLORIDE\VITAMIN B COMPLEX
     Route: 048
  5. TYLENOL [Concomitant]
     Active Substance: ACETAMINOPHEN
     Indication: ARTHRITIS
     Route: 048
  6. TRESIBA [Concomitant]
     Active Substance: INSULIN DEGLUDEC
     Route: 058
  7. PRINIVIL [Concomitant]
     Active Substance: LISINOPRIL
     Route: 048
  8. FARXIGA [Suspect]
     Active Substance: DAPAGLIFLOZIN PROPANEDIOL
     Route: 048
  9. ESTROVEN [Concomitant]
     Active Substance: DIETARY SUPPLEMENT
     Route: 048
  10. CINNAMON. [Concomitant]
     Active Substance: CINNAMON
     Route: 048
  11. ZESTRIL [Concomitant]
     Active Substance: LISINOPRIL
     Route: 048
  12. MULTIVITAMINS [Concomitant]
     Active Substance: VITAMINS
     Route: 048
  13. OZEMPIC [Concomitant]
     Active Substance: SEMAGLUTIDE
     Route: 058
  14. VITAMIN B12 [Concomitant]
     Active Substance: CYANOCOBALAMIN
     Route: 048

REACTIONS (5)
  - Irritability [Unknown]
  - Injection site nodule [Unknown]
  - Feeling jittery [Unknown]
  - Injection site pruritus [Unknown]
  - Headache [Unknown]

NARRATIVE: CASE EVENT DATE: 2020
